FAERS Safety Report 26094056 (Version 1)
Quarter: 2025Q4

REPORT INFORMATION
  Report Type: Spontaneous
  Country: EU (occurrence: EU)
  Receive Date: 20251126
  Receipt Date: 20251126
  Transmission Date: 20260117
  Serious: Yes (Other)
  Sender: INSUD PHARMA
  Company Number: EU-EMB-M202405763-1

PATIENT
  Sex: Female
  Weight: 64 kg

DRUGS (5)
  1. PROGESTERONE [Suspect]
     Active Substance: PROGESTERONE
     Indication: Prophylaxis of abortion
     Dosage: CONFLICTING REPORTS: UNCLEAR IF 400 OR 600 MG/D, AT LEAST TWO DOSES PER DAY
     Route: 067
     Dates: start: 202404, end: 202408
  2. UNSPECIFIED INGREDIENT [Suspect]
     Active Substance: UNSPECIFIED INGREDIENT
     Indication: Prophylaxis of abortion
     Dosage: 5-20 MG/D IT IS NOT KNOWN WHICH SUBSTANCE THE PATIENT USED, ACCORDING TO THE DOSAGE IT COULD HAVE BE
     Route: 067
     Dates: start: 202404, end: 202408
  3. OMEGAVEN [FISH OIL] [Concomitant]
     Indication: Prophylaxis of abortion
     Route: 042
     Dates: start: 202405, end: 202408
  4. DALTEPARIN SODIUM [Concomitant]
     Active Substance: DALTEPARIN SODIUM
     Indication: Factor II mutation
     Dosage: 5000 INTERNATIONAL UNIT, QD
     Route: 059
     Dates: start: 202406, end: 202501
  5. COVAXIS [Concomitant]
     Indication: Immunisation
     Dosage: UNK
     Route: 030
     Dates: start: 202511, end: 202511

REACTIONS (2)
  - Gestational diabetes [Recovered/Resolved]
  - Exposure during pregnancy [Unknown]

NARRATIVE: CASE EVENT DATE: 20240601
